FAERS Safety Report 16075136 (Version 1)
Quarter: 2019Q1

REPORT INFORMATION
  Report Type: Spontaneous
  Country: US (occurrence: US)
  Receive Date: 20190315
  Receipt Date: 20190315
  Transmission Date: 20190418
  Serious: Yes (Death, Other)
  Sender: FDA-Public Use
  Company Number: US-BRISTOL-MYERS SQUIBB COMPANY-BMS-2019-022705

PATIENT
  Age: 95 Year
  Sex: Female

DRUGS (1)
  1. COUMADIN [Suspect]
     Active Substance: WARFARIN SODIUM
     Indication: CEREBROVASCULAR ACCIDENT PROPHYLAXIS
     Route: 065

REACTIONS (10)
  - Fall [Unknown]
  - Clostridium difficile infection [Unknown]
  - Death [Fatal]
  - Hip fracture [Unknown]
  - Myocardial infarction [Unknown]
  - Insomnia [Unknown]
  - Haemorrhage subcutaneous [Unknown]
  - Amnesia [Unknown]
  - Skin discolouration [Unknown]
  - Circumstance or information capable of leading to medication error [Unknown]

NARRATIVE: CASE EVENT DATE: 20190301
